FAERS Safety Report 25975987 (Version 4)
Quarter: 2025Q4

REPORT INFORMATION
  Report Type: Report from Study
  Country: IN (occurrence: IN)
  Receive Date: 20251029
  Receipt Date: 20251125
  Transmission Date: 20260117
  Serious: Yes (Death, Other)
  Sender: TAKEDA
  Company Number: IN-TAKEDA-2025TUS095515

PATIENT
  Age: 28 Year
  Sex: Male

DRUGS (3)
  1. PONATINIB [Suspect]
     Active Substance: PONATINIB
     Indication: Philadelphia positive acute lymphocytic leukaemia
     Dosage: UNK
     Dates: start: 20231105, end: 20250628
  2. AZACITIDINE [Suspect]
     Active Substance: AZACITIDINE
     Indication: Philadelphia positive acute lymphocytic leukaemia
     Dosage: UNK
  3. VENETOCLAX [Suspect]
     Active Substance: VENETOCLAX
     Indication: Philadelphia positive acute lymphocytic leukaemia
     Dosage: UNK

REACTIONS (2)
  - Philadelphia positive acute lymphocytic leukaemia [Fatal]
  - Cytopenia [Recovered/Resolved]
